FAERS Safety Report 8978475 (Version 1)
Quarter: 2012Q4

REPORT INFORMATION
  Report Type: Report from Study
  Country: JP (occurrence: JP)
  Receive Date: 20121220
  Receipt Date: 20121220
  Transmission Date: 20130627
  Serious: Yes (Disabling)
  Sender: FDA-Public Use
  Company Number: JP-OTSUKA-JP-2012-13910

PATIENT
  Age: 61 Year
  Sex: Male
  Weight: 68 kg

DRUGS (20)
  1. SAMSCA [Suspect]
     Indication: FLUID RETENTION
     Dosage: 15 Mg milligram(s), qam
     Route: 048
     Dates: start: 20111223, end: 20120207
  2. HANP [Suspect]
     Indication: CARDIAC FAILURE
     Dosage: 2000 mcg, daily dose
     Route: 042
     Dates: start: 20111206, end: 20111212
  3. LASIX [Suspect]
     Indication: CARDIAC FAILURE
     Dosage: 40 Mg milligram(s), daily dose
     Route: 042
     Dates: start: 20111206, end: 20120106
  4. VENECTOMIN [Suspect]
     Indication: CARDIAC FAILURE
     Dosage: 100 Mg milligram(s), daily dose
     Route: 042
     Dates: start: 20111215, end: 20111215
  5. ALDACTONE A [Suspect]
     Indication: CARDIAC FAILURE
     Dosage: 25 Mg milligram(s), daily dose
     Route: 048
     Dates: start: 20111216
  6. BASEN [Concomitant]
     Dosage: 0.9 Mg milligram(s), daily dose
     Route: 048
     Dates: end: 20111206
  7. ADALAT [Concomitant]
     Dosage: 20 Mg milligram(s), daily dose
     Route: 048
     Dates: end: 20111206
  8. DIOVAN [Concomitant]
     Dosage: 160 Mg milligram(s), daily dose
     Route: 048
     Dates: end: 20111206
  9. PLAVIX [Concomitant]
     Dosage: 75 Mg milligram(s), daily dose
     Route: 048
  10. CRESTOR [Concomitant]
     Dosage: 2.5 Mg milligram(s), daily dose
     Route: 048
  11. NOVO HEPARIN [Concomitant]
     Indication: PROPHYLAXIS
     Dosage: 10 ml millilitre(s), daily dose
     Route: 042
     Dates: start: 20111206, end: 20111226
  12. HUMULIN N [Concomitant]
     Dosage: 10 Iu, daily dose
     Route: 058
     Dates: start: 20111206, end: 20111206
  13. XYLOCAINE [Concomitant]
     Dosage: 2.5 ml millilitre(s), daily dose
     Route: 058
     Dates: start: 20111211, end: 20111211
  14. MAGMITT [Concomitant]
     Dosage: 990 Mg milligram(s), daily dose
     Route: 048
     Dates: start: 20111213
  15. WARFARIN [Concomitant]
     Indication: PROPHYLAXIS
     Dosage: 2.5 Mg milligram(s), daily dose
     Route: 048
     Dates: start: 20111213
  16. PIMOBENDAN [Concomitant]
     Indication: CARDIAC FAILURE
     Dosage: 5 Mg milligram(s), daily dose
     Route: 048
     Dates: start: 20111215
  17. NOVOLIN 30R [Concomitant]
     Dosage: 20 Iu, daily dose
     Route: 058
     Dates: start: 20111219, end: 20111220
  18. ARTIST [Concomitant]
     Indication: CARDIAC FAILURE
     Dosage: 20 Mg milligram(s), daily dose
     Route: 048
     Dates: start: 20111219
  19. MAINTATE [Concomitant]
     Indication: CARDIAC FAILURE
     Dosage: 5 Mg milligram(s), daily dose
     Route: 048
     Dates: start: 20111220, end: 20111226
  20. NOVORAPID [Concomitant]
     Dosage: 20 Iu, daily dose
     Route: 058
     Dates: start: 20111221

REACTIONS (3)
  - Renal impairment [Recovered/Resolved with Sequelae]
  - Thirst [Recovering/Resolving]
  - Hyperkalaemia [Recovered/Resolved]
